FAERS Safety Report 9467565 (Version 2)
Quarter: 2015Q2

REPORT INFORMATION
  Report Type: Spontaneous
  Country: SE (occurrence: CH)
  Receive Date: 20130821
  Receipt Date: 20150517
  Transmission Date: 20150821
  Serious: Yes (Hospitalization, Other)
  Sender: FDA-Public Use
  Company Number: CH-009507513-1308CHE008017

PATIENT
  Age: 20 Year
  Sex: Female

DRUGS (6)
  1. AERIUS [Suspect]
     Active Substance: DESLORATADINE
     Dosage: 10 DF, ONCE
     Route: 048
     Dates: start: 20130509, end: 20130509
  2. ISOTRETINOIN [Suspect]
     Active Substance: ISOTRETINOIN
     Dosage: UNK
     Route: 048
     Dates: start: 20130509, end: 20130509
  3. QUETIAPINE FUMARATE. [Suspect]
     Active Substance: QUETIAPINE FUMARATE
     Dosage: 10 DF, ONCE
     Route: 048
     Dates: start: 20130509, end: 20130509
  4. CLOZAPINE. [Suspect]
     Active Substance: CLOZAPINE
     Dosage: 10 DF, ONCE
     Route: 048
     Dates: start: 20130509, end: 20130509
  5. QUETIAPINE FUMARATE. [Suspect]
     Active Substance: QUETIAPINE FUMARATE
     Dosage: 250 MG, ONCE
     Route: 048
     Dates: start: 20130509, end: 20130509
  6. LOPERAMIDE HYDROCHLORIDE. [Suspect]
     Active Substance: LOPERAMIDE HYDROCHLORIDE
     Dosage: UNK
     Route: 048
     Dates: start: 20130509, end: 20130509

REACTIONS (6)
  - Pyrexia [Recovered/Resolved]
  - Somnolence [Recovered/Resolved]
  - Hallucination [Recovered/Resolved]
  - Intentional overdose [Recovered/Resolved]
  - Electrocardiogram QT prolonged [Recovered/Resolved]
  - Tachycardia [Recovered/Resolved]

NARRATIVE: CASE EVENT DATE: 20130509
